FAERS Safety Report 14191510 (Version 3)
Quarter: 2018Q3

REPORT INFORMATION
  Report Type: Spontaneous
  Country: US (occurrence: US)
  Receive Date: 20171115
  Receipt Date: 20180813
  Transmission Date: 20181010
  Serious: No
  Sender: FDA-Public Use
  Company Number: US-CELLTRION INC.-2017US013854

PATIENT

DRUGS (6)
  1. INFLECTRA [Suspect]
     Active Substance: INFLIXIMAB-DYYB
     Dosage: 4 VIALS PER INFUSION
     Route: 065
     Dates: start: 20171228, end: 20171228
  2. INFLECTRA [Suspect]
     Active Substance: INFLIXIMAB-DYYB
     Indication: PSORIATIC ARTHROPATHY
     Dosage: 4 VIALS PER INFUSION
     Route: 065
     Dates: start: 20170824, end: 20170824
  3. INFLECTRA [Suspect]
     Active Substance: INFLIXIMAB-DYYB
     Dosage: 4 VIALS PER INFUSION
     Route: 065
     Dates: start: 20171026, end: 20171026
  4. INFLECTRA [Suspect]
     Active Substance: INFLIXIMAB-DYYB
     Dosage: UNK
     Route: 065
     Dates: start: 20180628, end: 20180628
  5. INFLECTRA [Suspect]
     Active Substance: INFLIXIMAB-DYYB
     Dosage: 4 VIALS PER INFUSION
     Route: 065
     Dates: start: 20180222, end: 20180222
  6. INFLECTRA [Suspect]
     Active Substance: INFLIXIMAB-DYYB
     Dosage: 4 VIALS, CYCLIC 4 VIALS PER INFUSION
     Route: 065
     Dates: start: 20180426, end: 20180426

REACTIONS (2)
  - Drug prescribing error [Unknown]
  - Inappropriate schedule of drug administration [Unknown]
